FAERS Safety Report 13254792 (Version 1)
Quarter: 2017Q1

REPORT INFORMATION
  Report Type: Spontaneous
  Country: US (occurrence: US)
  Receive Date: 20170221
  Receipt Date: 20170221
  Transmission Date: 20170428
  Serious: Yes (Other)
  Sender: FDA-Public Use
  Company Number: US-PFIZER INC-2017066645

PATIENT
  Sex: Male

DRUGS (1)
  1. XELJANZ XR [Suspect]
     Active Substance: TOFACITINIB CITRATE
     Dosage: 11 MG, UNK

REACTIONS (7)
  - Paraesthesia [Unknown]
  - Joint swelling [Unknown]
  - Arthralgia [Unknown]
  - Joint stiffness [Unknown]
  - Herpes zoster [Unknown]
  - Neuralgia [Unknown]
  - Pneumonia [Unknown]
